FAERS Safety Report 7421200-2 (Version None)
Quarter: 2011Q2

REPORT INFORMATION
  Report Type: 
  Country: None (occurrence: None)
  Receive Date: 20110418
  Receipt Date: 20110408
  Transmission Date: 20111010
  Serious: Yes (Hospitalization)
  Sender: FDA-Public Use
  Company Number: US-ASTRAZENECA-2006UW04410

PATIENT
  Age: 52 Year
  Sex: Female
  Weight: 65.8 kg

DRUGS (6)
  1. PRANDIN [Concomitant]
  2. GLUCOPHAGE [Concomitant]
  3. DIOVAN [Concomitant]
  4. NEXIUM [Suspect]
     Route: 048
  5. TOPROL-XL [Suspect]
     Indication: HYPERTENSION
     Route: 048
     Dates: start: 20060101
  6. LYRICA [Concomitant]

REACTIONS (2)
  - HOSPITALISATION [None]
  - GLYCOSYLATED HAEMOGLOBIN INCREASED [None]
